FAERS Safety Report 5722923-3 (Version None)
Quarter: 2008Q2

REPORT INFORMATION
  Report Type: 
  Country: None (occurrence: None)
  Receive Date: 20080425
  Receipt Date: 20080417
  Transmission Date: 20081010
  Serious: Yes (Hospitalization)
  Sender: FDA-Public Use
  Company Number: 2008BI004854

PATIENT
  Age: 63 Year
  Sex: Male

DRUGS (1)
  1. AVONEX [Suspect]
     Indication: MULTIPLE SCLEROSIS
     Dosage: 30 UG;QW;IM
     Route: 030
     Dates: start: 20000801

REACTIONS (5)
  - CARTILAGE INJURY [None]
  - FALL [None]
  - OSTEOARTHRITIS [None]
  - OSTEOCHONDROSIS [None]
  - TREATMENT FAILURE [None]
